FAERS Safety Report 25562025 (Version 1)
Quarter: 2025Q3

REPORT INFORMATION
  Report Type: Spontaneous
  Country: US (occurrence: US)
  Receive Date: 20250716
  Receipt Date: 20250716
  Transmission Date: 20251021
  Serious: No
  Sender: AUROBINDO
  Company Number: US-AUROBINDO-AUR-APL-2025-000277

PATIENT
  Age: 86 Year
  Sex: Female
  Weight: 74.84 kg

DRUGS (9)
  1. METRONIDAZOLE [Suspect]
     Active Substance: METRONIDAZOLE
     Indication: Psoriasis
     Route: 048
  2. LISINOPRIL [Concomitant]
     Active Substance: LISINOPRIL
     Indication: Hypertension
     Route: 065
  3. ASCORBIC ACID [Concomitant]
     Active Substance: ASCORBIC ACID
     Indication: Product used for unknown indication
     Route: 065
  4. POTASSIUM [Concomitant]
     Active Substance: POTASSIUM
     Indication: Product used for unknown indication
     Route: 065
  5. VITAMINS [Concomitant]
     Active Substance: VITAMINS
     Indication: Product used for unknown indication
     Route: 065
  6. BILBERRY [Concomitant]
     Active Substance: BILBERRY
     Indication: Eye disorder
     Dosage: UNK, ONCE A DAY
     Route: 048
  7. BROMELAINS [Concomitant]
     Active Substance: BROMELAINS
     Indication: Product used for unknown indication
     Route: 048
  8. DIETARY SUPPLEMENT [Concomitant]
     Active Substance: DIETARY SUPPLEMENT
     Indication: Cerebral disorder
     Dosage: 50 MILLIGRAM, ONCE A DAY
     Route: 048
  9. Apoaequorin [Concomitant]
     Indication: Cerebral disorder
     Dosage: UNK, ONCE A DAY
     Route: 065

REACTIONS (2)
  - Vision blurred [Unknown]
  - Condition aggravated [Unknown]
